FAERS Safety Report 6341365-3 (Version None)
Quarter: 2009Q3

REPORT INFORMATION
  Report Type: 
  Country: None (occurrence: None)
  Receive Date: 20090904
  Receipt Date: 20090902
  Transmission Date: 20100115
  Serious: Yes (Death)
  Sender: FDA-Public Use
  Company Number: PHHY2009CN37204

PATIENT

DRUGS (2)
  1. CARBAMAZEPINE [Suspect]
     Indication: EPILEPSY
     Dosage: UNK
  2. PHENYTOIN [Concomitant]
     Dosage: UNK

REACTIONS (2)
  - HEPATIC FAILURE [None]
  - HEPATITIS [None]
